FAERS Safety Report 16737856 (Version 4)
Quarter: 2020Q1

REPORT INFORMATION
  Report Type: Spontaneous
  Country: JP (occurrence: JP)
  Receive Date: 20190824
  Receipt Date: 20200102
  Transmission Date: 20200409
  Serious: Yes (Hospitalization)
  Sender: FDA-Public Use
  Company Number: JP-ROCHE-2390837

PATIENT
  Age: 55 Year
  Sex: Female

DRUGS (12)
  1. XOLAIR [Suspect]
     Active Substance: OMALIZUMAB
     Indication: ASTHMA
     Route: 058
     Dates: start: 20161220, end: 20180423
  2. XOLAIR [Suspect]
     Active Substance: OMALIZUMAB
     Route: 058
     Dates: start: 20190105, end: 20190805
  3. ESOMEPRAZOLE. [Concomitant]
     Active Substance: ESOMEPRAZOLE MAGNESIUM
  4. THEOLONG [Concomitant]
     Active Substance: THEOPHYLLINE ANHYDROUS
  5. SINGULAIR [Concomitant]
     Active Substance: MONTELUKAST SODIUM
  6. PREDONINE [Concomitant]
     Active Substance: PREDNISOLONE
  7. SYMBICORT [Concomitant]
     Active Substance: BUDESONIDE\FORMOTEROL FUMARATE DIHYDRATE
  8. SPIROPENT [Concomitant]
     Active Substance: CLENBUTEROL HYDROCHLORIDE
  9. SPIRIVA [Concomitant]
     Active Substance: TIOTROPIUM BROMIDE MONOHYDRATE
  10. CARBOCISTEINE [Concomitant]
     Active Substance: CARBOCYSTEINE
  11. RECALBON [MINODRONIC ACID] [Concomitant]
     Active Substance: MINODRONIC ACID
  12. ALLEGRA [Concomitant]
     Active Substance: FEXOFENADINE HYDROCHLORIDE

REACTIONS (2)
  - Asthma [Recovered/Resolved]
  - Nasopharyngitis [Unknown]

NARRATIVE: CASE EVENT DATE: 20190718
